FAERS Safety Report 4635004-7 (Version None)
Quarter: 2005Q2

REPORT INFORMATION
  Report Type: 
  Country: None (occurrence: None)
  Receive Date: 20050411
  Receipt Date: 20050404
  Transmission Date: 20051028
  Serious: Yes (Hospitalization, Other)
  Sender: FDA-Public Use
  Company Number: 2005054449

PATIENT
  Age: 68 Year
  Sex: Female
  Weight: 56.246 kg

DRUGS (5)
  1. LIPITOR [Suspect]
     Indication: ILL-DEFINED DISORDER
     Dosage: 20 MG (20 MG, 1 IN 1 D), ORAL
     Route: 048
     Dates: start: 20040101
  2. ASPIRIN [Suspect]
     Indication: ILL-DEFINED DISORDER
     Dates: start: 20040101, end: 20050101
  3. ANTITHROMBOTIC AGENTS (ANTITHROMBOTIC AGENTS) [Suspect]
     Indication: ILL-DEFINED DISORDER
     Dates: start: 20040101, end: 20040101
  4. HYZAAR [Concomitant]
  5. CLONAZEPAM [Concomitant]

REACTIONS (3)
  - CONTUSION [None]
  - DIARRHOEA [None]
  - GASTRIC ULCER HAEMORRHAGE [None]
